FAERS Safety Report 9499376 (Version 3)
Quarter: 2013Q4

REPORT INFORMATION
  Report Type: Spontaneous
  Country: FR (occurrence: FR)
  Receive Date: 20130905
  Receipt Date: 20131221
  Transmission Date: 20140711
  Serious: Yes (Death, Hospitalization, Other)
  Sender: FDA-Public Use
  Company Number: FR-AMGEN-FRASP2013061881

PATIENT
  Age: 53 Year
  Sex: Male
  Weight: 80 kg

DRUGS (7)
  1. XGEVA [Suspect]
     Indication: PROPHYLAXIS
     Dosage: 120 MG, Q4WK
     Route: 058
     Dates: start: 20130726
  2. XGEVA [Suspect]
     Indication: METASTASES TO BONE
  3. CALCIUM [Concomitant]
     Dosage: UNK
     Dates: start: 20130816
  4. VITAMIN D                          /00107901/ [Concomitant]
     Dosage: 3 DROPS, QD
  5. OROCAL D3 [Concomitant]
     Indication: SUPPLEMENTATION THERAPY
     Dosage: UNK UNK, QD
     Route: 048
     Dates: start: 20130724, end: 20131109
  6. KARDEGIC [Concomitant]
     Indication: CORONARY ARTERY DISEASE
     Dosage: 160 MG, QD
     Route: 048
     Dates: start: 2008
  7. CIFLOX                             /00697201/ [Concomitant]
     Dosage: UNK
     Dates: start: 20130816

REACTIONS (29)
  - Arrhythmia [Fatal]
  - Cerebrovascular accident [Fatal]
  - Hypocalcaemia [Fatal]
  - Atrial fibrillation [Unknown]
  - Escherichia urinary tract infection [Unknown]
  - Bladder dilatation [Unknown]
  - Pleural effusion [Unknown]
  - Lymphadenopathy mediastinal [Unknown]
  - Gastrointestinal haemorrhage [Unknown]
  - Intestinal obstruction [Unknown]
  - Epistaxis [Unknown]
  - Metastases to central nervous system [Unknown]
  - Cervical vertebral fracture [Unknown]
  - Duodenitis [Unknown]
  - Duodenal ulcer [Unknown]
  - Faecal vomiting [Unknown]
  - Bladder dilatation [Unknown]
  - Melaena [Unknown]
  - Electrocardiogram QT prolonged [Unknown]
  - Haematemesis [Unknown]
  - Thrombocytopenia [Unknown]
  - Anaemia [Unknown]
  - Haemoptysis [Unknown]
  - Fall [Unknown]
  - Hilar lymphadenopathy [Unknown]
  - Hypomagnesaemia [Unknown]
  - Glial scar [Unknown]
  - Pyrexia [Unknown]
  - Dyspnoea [Unknown]
